FAERS Safety Report 21029572 (Version 1)
Quarter: 2022Q2

REPORT INFORMATION
  Report Type: Spontaneous
  Country: FR (occurrence: FR)
  Receive Date: 20220630
  Receipt Date: 20220630
  Transmission Date: 20220721
  Serious: Yes (Life-Threatening, Other)
  Sender: FDA-Public Use
  Company Number: FR-PFIZER INC-202200887257

PATIENT
  Sex: Male
  Weight: 96 kg

DRUGS (4)
  1. AVIBACTAM SODIUM\CEFTAZIDIME [Suspect]
     Active Substance: AVIBACTAM SODIUM\CEFTAZIDIME
     Indication: Enterobacter infection
     Dosage: UNK, 1X/DAY
     Route: 048
     Dates: start: 20220519, end: 20220530
  2. DAPTOMYCIN [Suspect]
     Active Substance: DAPTOMYCIN
     Indication: Osteitis
     Dosage: 850 MG, QD
     Route: 048
     Dates: start: 20220506, end: 20220530
  3. CLINDAMYCIN HYDROCHLORIDE [Suspect]
     Active Substance: CLINDAMYCIN HYDROCHLORIDE
     Indication: Osteitis
     Dosage: UNK
     Route: 048
     Dates: start: 20220511, end: 20220530
  4. AZTREONAM [Suspect]
     Active Substance: AZTREONAM
     Indication: Enterobacter infection
     Dosage: UNK
     Route: 048
     Dates: start: 20220519, end: 20220530

REACTIONS (2)
  - Eosinophilic pneumonia [Recovering/Resolving]
  - Acute kidney injury [Recovering/Resolving]

NARRATIVE: CASE EVENT DATE: 20220528
